FAERS Safety Report 8273907-5 (Version None)
Quarter: 2012Q2

REPORT INFORMATION
  Report Type: 
  Country: None (occurrence: None)
  Receive Date: 20120411
  Receipt Date: 20120404
  Transmission Date: 20120825
  Serious: Yes (Death)
  Sender: FDA-Public Use
  Company Number: US-CELGENEUS-163-21880-12031199

PATIENT
  Sex: Female
  Weight: 47.67 kg

DRUGS (11)
  1. DEXAMETHASONE [Concomitant]
     Dosage: 40 MILLIGRAM
     Route: 048
  2. DIFLUCAN [Concomitant]
     Dosage: 40 MILLIGRAM/MILLILITERS
     Route: 048
  3. DIFLUCAN [Concomitant]
     Dosage: 2.5 MILLILITER
     Route: 065
  4. NYSTATIN [Concomitant]
     Dosage: 5 MILLILITER
     Route: 048
  5. REVLIMID [Suspect]
     Indication: MULTIPLE MYELOMA
     Dosage: 10 MILLIGRAM
     Route: 048
     Dates: start: 20111013, end: 20120216
  6. DILAUDID [Concomitant]
     Indication: PAIN
     Dosage: 2 MILLIGRAM
     Route: 048
  7. OXYCONTIN [Concomitant]
     Dosage: 40 MILLIGRAM
     Route: 048
  8. ASPIRIN [Concomitant]
     Dosage: 81 MILLIGRAM
     Route: 048
  9. DIFLUCAN [Concomitant]
     Dosage: 100 MILLIGRAM
     Route: 048
  10. MAGIC MOUTHWASH [Concomitant]
     Indication: PAIN
     Dosage: 5 MILLILITER
     Route: 048
  11. COLACE [Concomitant]
     Dosage: 100 MILLIGRAM
     Route: 048

REACTIONS (2)
  - SEPSIS [None]
  - MULTIPLE MYELOMA [None]
